FAERS Safety Report 16093412 (Version 1)
Quarter: 2019Q1

REPORT INFORMATION
  Report Type: Spontaneous
  Country: IT (occurrence: IT)
  Receive Date: 20190320
  Receipt Date: 20190320
  Transmission Date: 20190418
  Serious: Yes (Life-Threatening)
  Sender: FDA-Public Use
  Company Number: IT-SUN PHARMACEUTICAL INDUSTRIES LTD-2019RR-202065

PATIENT
  Age: 52 Year
  Sex: Female

DRUGS (2)
  1. ALPRAZOLAM. [Suspect]
     Active Substance: ALPRAZOLAM
     Indication: DRUG ABUSE
     Dosage: IN TOTAL
     Route: 048
     Dates: start: 20181203, end: 20181203
  2. TRITTICO 25 MG/ML GOCCE ORALI, SOLUZIONE [Suspect]
     Active Substance: TRAZODONE HYDROCHLORIDE
     Indication: DRUG ABUSE
     Dosage: IN TOTAL
     Route: 048
     Dates: start: 20181203, end: 20181203

REACTIONS (4)
  - Hypoventilation [Recovering/Resolving]
  - Loss of consciousness [Recovering/Resolving]
  - Drug abuse [Recovering/Resolving]
  - Coma [Recovering/Resolving]

NARRATIVE: CASE EVENT DATE: 20181203
